FAERS Safety Report 7177220-9 (Version None)
Quarter: 2010Q4

REPORT INFORMATION
  Report Type: 
  Country: None (occurrence: None)
  Receive Date: 20101220
  Receipt Date: 20101209
  Transmission Date: 20110411
  Serious: Yes (Hospitalization)
  Sender: FDA-Public Use
  Company Number: CH-ROCHE-747377

PATIENT
  Age: 46 Year
  Sex: Male

DRUGS (3)
  1. CELLCEPT [Suspect]
     Dosage: DURATION OF USE: LONGTERM
     Route: 048
  2. SANDIMMUNE [Interacting]
     Dosage: DURATION OF USE: LONG TERM
     Route: 048
  3. PREDNISONE [Interacting]
     Dosage: DURATION OF USE: LONG TERM
     Route: 048

REACTIONS (4)
  - BACTERIAL INFECTION [None]
  - DRUG INTERACTION [None]
  - PNEUMONIA [None]
  - SEPSIS [None]
